FAERS Safety Report 18757609 (Version 2)
Quarter: 2021Q1

REPORT INFORMATION
  Report Type: Report from Study
  Country: US (occurrence: US)
  Receive Date: 20210119
  Receipt Date: 20210211
  Transmission Date: 20210419
  Serious: Yes (Disabling)
  Sender: FDA-Public Use
  Company Number: US-JNJFOC-20200215790

PATIENT
  Age: 70 Year
  Sex: Female
  Weight: 57.66 kg

DRUGS (26)
  1. CLONAZEPAM. [Concomitant]
     Active Substance: CLONAZEPAM
     Indication: ANXIETY
     Dosage: SINCE 1970^S
     Route: 065
  2. VITAMIN A                          /00056001/ [Concomitant]
     Active Substance: RETINOL
     Route: 065
  3. PHOSPHATIDYL SERINE [Concomitant]
     Active Substance: PHOSPHATIDYL SERINE
     Route: 065
  4. ALPHA LIPOIC ACID [Concomitant]
     Active Substance: .ALPHA.-LIPOIC ACID
     Route: 065
  5. MELATONIN [Concomitant]
     Active Substance: MELATONIN
     Indication: SLEEP DISORDER THERAPY
     Dosage: FROM LAST 20 YEARS
     Route: 065
  6. ACETYL L CARNITINE [Concomitant]
     Route: 065
  7. CALCIUM CITRATE + D [Concomitant]
     Active Substance: CALCIUM CITRATE\CHOLECALCIFEROL
     Route: 065
  8. YUVAFEM [Concomitant]
     Active Substance: ESTRADIOL HEMIHYDRATE
     Indication: ATROPHIC VULVOVAGINITIS
     Route: 065
     Dates: start: 20190412
  9. B COMPLEX                          /00322001/ [Concomitant]
     Active Substance: CALCIUM PANTOTHENATE\CYANOCOBALAMIN\NIACINAMIDE\PYRIDOXINE HYDROCHLORIDE\RIBOFLAVIN\THIAMINE HYDROCHLORIDE
     Route: 065
  10. CHROMIUM PICOLINATE [Concomitant]
     Active Substance: CHROMIUM PICOLINATE
     Route: 065
  11. GABAPENTIN. [Concomitant]
     Active Substance: GABAPENTIN
     Indication: HOT FLUSH
     Route: 065
     Dates: start: 20190412
  12. VITAMIN C [Concomitant]
     Active Substance: ASCORBIC ACID
     Route: 065
  13. DHA [Concomitant]
     Active Substance: DIETARY SUPPLEMENT
     Route: 065
  14. FISH OIL                           /00492901/ [Concomitant]
     Active Substance: COD LIVER OIL
     Route: 065
  15. ZINC. [Concomitant]
     Active Substance: ZINC
     Route: 065
  16. SPRAVATO [Suspect]
     Active Substance: ESKETAMINE
     Indication: DEPRESSION
     Dates: start: 20191112, end: 20200221
  17. VITAMIN D3 [Concomitant]
     Active Substance: CHOLECALCIFEROL
     Route: 065
  18. MAGNESIUM                          /00123201/ [Concomitant]
     Active Substance: MAGNESIUM HYDROXIDE
     Route: 065
  19. ZYRTEC [Concomitant]
     Active Substance: CETIRIZINE HYDROCHLORIDE
     Indication: MULTIPLE ALLERGIES
     Dosage: SINCE 1970^S
     Route: 065
  20. EFFEXOR XR [Concomitant]
     Active Substance: VENLAFAXINE HYDROCHLORIDE
     Indication: PERSISTENT DEPRESSIVE DISORDER
  21. VITAMIN E                          /00110501/ [Concomitant]
     Active Substance: TOCOPHEROL
     Route: 065
  22. FOLIC ACID. [Concomitant]
     Active Substance: FOLIC ACID
     Route: 065
  23. LUTEIN                             /01638501/ [Concomitant]
     Active Substance: LUTEIN
     Route: 065
  24. SELENIUM [Concomitant]
     Active Substance: SELENIUM
     Route: 065
  25. TAURINE [Concomitant]
     Active Substance: TAURINE
     Route: 065
  26. EFFEXOR XR [Concomitant]
     Active Substance: VENLAFAXINE HYDROCHLORIDE
     Indication: DEPRESSION
     Dosage: SINCE 1970^S
     Route: 065

REACTIONS (7)
  - Sensory disturbance [Unknown]
  - Emotional disorder [Unknown]
  - Epistaxis [Recovered/Resolved]
  - Depression [Unknown]
  - Dissociation [Not Recovered/Not Resolved]
  - Pollakiuria [Recovered/Resolved]
  - Adverse drug reaction [Unknown]

NARRATIVE: CASE EVENT DATE: 20191112
